FAERS Safety Report 8987874 (Version 1)
Quarter: 2012Q4

REPORT INFORMATION
  Report Type: Report from Study
  Country: DE (occurrence: DE)
  Receive Date: 20121227
  Receipt Date: 20121227
  Transmission Date: 20130627
  Serious: Yes (Hospitalization)
  Sender: FDA-Public Use
  Company Number: DE-GLAXOSMITHKLINE-B0838990B

PATIENT
  Age: 30 Year
  Sex: Female
  Weight: 62 kg

DRUGS (6)
  1. LAPATINIB [Suspect]
     Indication: BREAST CANCER
     Dosage: 500MG Per day
     Route: 048
     Dates: start: 20120905
  2. MYOCET [Suspect]
     Indication: BREAST CANCER
     Dosage: 15MGM2 Weekly
     Route: 042
     Dates: start: 20120905
  3. HERCEPTIN [Suspect]
     Indication: BREAST CANCER
     Dosage: 6MGK Cyclic
     Route: 042
     Dates: start: 20120905
  4. PACLITAXEL [Suspect]
     Indication: BREAST CANCER
     Dosage: 60MGM2 Cyclic
     Route: 042
     Dates: start: 20120905
  5. PANTOZOL [Concomitant]
     Dates: start: 20121111
  6. TAZOBAC [Concomitant]
     Dates: start: 20121111

REACTIONS (1)
  - Bronchitis [Recovered/Resolved]
